FAERS Safety Report 10277209 (Version 2)
Quarter: 2014Q4

REPORT INFORMATION
  Report Type: Spontaneous
  Country: US (occurrence: US)
  Receive Date: 20140703
  Receipt Date: 20141003
  Transmission Date: 20150528
  Serious: Yes (Death, Hospitalization, Other)
  Sender: FDA-Public Use
  Company Number: US-GILEAD-2014-0107517

PATIENT
  Age: 73 Year
  Sex: Male

DRUGS (5)
  1. LETAIRIS [Suspect]
     Active Substance: AMBRISENTAN
     Indication: HAEMOLYTIC ANAEMIA
  2. TYVASO [Concomitant]
     Active Substance: TREPROSTINIL
  3. RIOCIGUAT [Concomitant]
     Active Substance: RIOCIGUAT
  4. REMODULIN [Concomitant]
     Active Substance: TREPROSTINIL
  5. LETAIRIS [Suspect]
     Active Substance: AMBRISENTAN
     Indication: PULMONARY HYPERTENSION
     Dosage: 10 MG, QD
     Route: 065
     Dates: start: 20110610

REACTIONS (3)
  - Pulmonary hypertension [Fatal]
  - Right ventricular failure [Fatal]
  - Haemolytic anaemia [Fatal]
